FAERS Safety Report 11006076 (Version 2)
Quarter: 2015Q2

REPORT INFORMATION
  Report Type: Report from Study
  Country: US (occurrence: US)
  Receive Date: 20150409
  Receipt Date: 20150430
  Transmission Date: 20150821
  Serious: Yes (Other)
  Sender: FDA-Public Use
  Company Number: US-GILEAD-2015-0142094

PATIENT
  Age: 64 Year
  Sex: Male
  Weight: 68.5 kg

DRUGS (8)
  1. CIALIS [Concomitant]
     Active Substance: TADALAFIL
  2. IDELALISIB [Suspect]
     Active Substance: IDELALISIB
     Indication: NON-HODGKIN^S LYMPHOMA
     Dosage: 150 MG, BID
     Route: 048
     Dates: start: 20150206, end: 20150310
  3. BAYER ASPIRIN [Concomitant]
     Active Substance: ASPIRIN
     Dosage: UNK
  4. PREVACID [Concomitant]
     Active Substance: LANSOPRAZOLE
     Dosage: UNK
  5. LIDODERM [Concomitant]
     Active Substance: LIDOCAINE
  6. NIASPAN [Concomitant]
     Active Substance: NIACIN
     Dosage: UNK
  7. OSTEO BI-FLEX                      /01431201/ [Concomitant]
     Indication: ARTHRITIS
     Dosage: UNK
  8. ZOCOR [Concomitant]
     Active Substance: SIMVASTATIN
     Dosage: UNK

REACTIONS (3)
  - Transaminases increased [Unknown]
  - Stomatitis [Recovered/Resolved]
  - Hypogammaglobulinaemia [Unknown]

NARRATIVE: CASE EVENT DATE: 201503
